FAERS Safety Report 13056846 (Version 2)
Quarter: 2017Q1

REPORT INFORMATION
  Report Type: Spontaneous
  Country: US (occurrence: US)
  Receive Date: 20161222
  Receipt Date: 20170106
  Transmission Date: 20170428
  Serious: Yes (Hospitalization)
  Sender: FDA-Public Use
  Company Number: US-BIOMARINAP-US-2016-111014

PATIENT
  Sex: Female
  Weight: 73 kg

DRUGS (2)
  1. VIMIZIM [Suspect]
     Active Substance: ELOSULFASE ALFA
     Dosage: 160 MG, QW
     Route: 042
     Dates: start: 20150107
  2. VIMIZIM [Suspect]
     Active Substance: ELOSULFASE ALFA
     Indication: MUCOPOLYSACCHARIDOSIS IV
     Dosage: 5 MG/ML, QW
     Route: 065
     Dates: start: 20140626

REACTIONS (1)
  - Exposure during pregnancy [Unknown]
